APPROVED DRUG PRODUCT: TRANDATE HCT
Active Ingredient: HYDROCHLOROTHIAZIDE; LABETALOL HYDROCHLORIDE
Strength: 25MG;400MG
Dosage Form/Route: TABLET;ORAL
Application: N019174 | Product #004
Applicant: GLAXOSMITHKLINE
Approved: Apr 10, 1987 | RLD: No | RS: No | Type: DISCN